FAERS Safety Report 7624421-9 (Version None)
Quarter: 2011Q3

REPORT INFORMATION
  Report Type: 
  Country: None (occurrence: None)
  Receive Date: 20110701
  Receipt Date: 20110106
  Transmission Date: 20111222
  Serious: Yes (Hospitalization, Disabling)
  Sender: FDA-Public Use
  Company Number: 7035137

PATIENT
  Age: 29 Year
  Sex: Female
  Weight: 51 kg

DRUGS (6)
  1. SERTRALINE HYDROCHLORIDE [Concomitant]
  2. STOOL SOFTENER (DOCUSATE SODIUM) [Concomitant]
  3. REBIF [Suspect]
     Indication: MULTIPLE SCLEROSIS
     Dosage: 22 MCG, 3 IN 1 WK, SUBCUTANEOUS, 44 MCG, 3 IN 1 WK, SUBCUTANEOUS
     Route: 058
     Dates: start: 20100621, end: 20100101
  4. REBIF [Suspect]
     Indication: MULTIPLE SCLEROSIS
     Dosage: 22 MCG, 3 IN 1 WK, SUBCUTANEOUS, 44 MCG, 3 IN 1 WK, SUBCUTANEOUS
     Route: 058
     Dates: start: 20100101, end: 20110209
  5. SYMBICORT [Concomitant]
  6. GABAPENTIN [Concomitant]

REACTIONS (6)
  - INJECTION SITE PAIN [None]
  - INJECTION SITE SWELLING [None]
  - ARTHRALGIA [None]
  - INJECTION SITE PRURITUS [None]
  - INJECTION SITE DRYNESS [None]
  - MULTIPLE SCLEROSIS RELAPSE [None]
